FAERS Safety Report 16510718 (Version 1)
Quarter: 2019Q3

REPORT INFORMATION
  Report Type: Spontaneous
  Country: US (occurrence: US)
  Receive Date: 20190701
  Receipt Date: 20190701
  Transmission Date: 20191004
  Serious: Yes (Other)
  Sender: FDA-Public Use
  Company Number: None

PATIENT
  Age: 69 Year
  Sex: Female

DRUGS (10)
  1. ELIQUIS [Concomitant]
     Active Substance: APIXABAN
  2. XIIDRA OPHTH DROP [Concomitant]
  3. GABAPENTIN. [Concomitant]
     Active Substance: GABAPENTIN
  4. TRAZODONE [Concomitant]
     Active Substance: TRAZODONE HYDROCHLORIDE
  5. DICLOFENAC GEL [Concomitant]
     Active Substance: DICLOFENAC
  6. XELJANZ XR [Suspect]
     Active Substance: TOFACITINIB CITRATE
     Indication: PSORIATIC ARTHROPATHY
     Route: 048
     Dates: start: 20171130
  7. IPRATROPIUM NASAL [Concomitant]
  8. METHOTREXATE INJECTION [Concomitant]
     Active Substance: METHOTREXATE
  9. TOPIRAMATE. [Concomitant]
     Active Substance: TOPIRAMATE
  10. LEVOTHYROXINE. [Concomitant]
     Active Substance: LEVOTHYROXINE

REACTIONS (2)
  - Intermittent claudication [None]
  - Peripheral swelling [None]

NARRATIVE: CASE EVENT DATE: 20190701
